FAERS Safety Report 4317081-6 (Version None)
Quarter: 2004Q1

REPORT INFORMATION
  Report Type: 
  Country: None (occurrence: None)
  Receive Date: 20040312
  Receipt Date: 20040224
  Transmission Date: 20041129
  Serious: Yes (Hospitalization)
  Sender: FDA-Public Use
  Company Number: 8005662

PATIENT
  Age: 13 Year
  Sex: Female
  Weight: 54 kg

DRUGS (2)
  1. KEPPRA [Suspect]
     Dosage: PO
     Route: 048
     Dates: start: 20030801
  2. TEGRETOL [Suspect]
     Dosage: 15 MG/D PO
     Route: 048
     Dates: start: 19910101

REACTIONS (8)
  - BLOOD ALKALINE PHOSPHATASE INCREASED [None]
  - BLOOD PARATHYROID HORMONE INCREASED [None]
  - CONVULSION [None]
  - HUMERUS FRACTURE [None]
  - HYPOCALCAEMIA [None]
  - IMPAIRED HEALING [None]
  - PYREXIA [None]
  - VITAMIN D DECREASED [None]
